FAERS Safety Report 4817109-0 (Version None)
Quarter: 2005Q4

REPORT INFORMATION
  Report Type: 
  Country: None (occurrence: None)
  Receive Date: 20051018
  Receipt Date: 20050805
  Transmission Date: 20060501
  Serious: Yes (Hospitalization)
  Sender: FDA-Public Use
  Company Number: PHEH2005US08785

PATIENT
  Sex: Female

DRUGS (1)
  1. ZOMETA [Suspect]
     Indication: METASTASES TO BONE
     Dosage: 4 MG EVERY MONTH, INFUSION
     Dates: start: 20050802

REACTIONS (4)
  - BLOOD CALCIUM DECREASED [None]
  - CALCIUM IONISED DECREASED [None]
  - NAUSEA [None]
  - PARAESTHESIA [None]
